FAERS Safety Report 7679717-1 (Version None)
Quarter: 2011Q3

REPORT INFORMATION
  Report Type: 
  Country: None (occurrence: None)
  Receive Date: 20110809
  Receipt Date: 20110805
  Transmission Date: 20111222
  Serious: Yes (Other)
  Sender: FDA-Public Use
  Company Number: CAR-2008-028 F-UP #1

PATIENT
  Age: 83 Year
  Sex: Female

DRUGS (1)
  1. SUCRALFATE [Suspect]
     Dates: start: 20070124

REACTIONS (1)
  - HEPATIC FUNCTION ABNORMAL [None]
